FAERS Safety Report 8313364-3 (Version None)
Quarter: 2012Q2

REPORT INFORMATION
  Report Type: 
  Country: None (occurrence: None)
  Receive Date: 20120426
  Receipt Date: 20120420
  Transmission Date: 20120825
  Serious: Yes (Other)
  Sender: FDA-Public Use
  Company Number: PHEH2011US08516

PATIENT
  Sex: Male
  Weight: 58.957 kg

DRUGS (3)
  1. GILENYA [Suspect]
     Indication: RELAPSING-REMITTING MULTIPLE SCLEROSIS
     Dosage: 1 DF, QD
     Route: 048
     Dates: start: 20110321, end: 20111101
  2. GILENYA [Suspect]
     Dosage: 1 DF, QD
     Route: 048
  3. THYROID [Concomitant]

REACTIONS (2)
  - VISION BLURRED [None]
  - CATARACT SUBCAPSULAR [None]
